FAERS Safety Report 8478229-5 (Version None)
Quarter: 2012Q2

REPORT INFORMATION
  Report Type: 
  Country: None (occurrence: None)
  Receive Date: 20120629
  Receipt Date: 20120619
  Transmission Date: 20120825
  Serious: Yes (Hospitalization, Other)
  Sender: FDA-Public Use
  Company Number: CN-JNJFOC-20111109206

PATIENT
  Sex: Male

DRUGS (1)
  1. TOPAMAX [Suspect]
     Indication: PRODUCT USED FOR UNKNOWN INDICATION
     Route: 048
     Dates: start: 20110930, end: 20111030

REACTIONS (2)
  - HYPOTONIA NEONATAL [None]
  - DRUG ADMINISTERED TO PATIENT OF INAPPROPRIATE AGE [None]
